FAERS Safety Report 9374407 (Version 4)
Quarter: 2014Q1

REPORT INFORMATION
  Report Type: Spontaneous
  Country: CH (occurrence: CH)
  Receive Date: 20130628
  Receipt Date: 20140116
  Transmission Date: 20141002
  Serious: Yes (Hospitalization, Other)
  Sender: FDA-Public Use
  Company Number: PHHY2013CH061790

PATIENT
  Sex: Female

DRUGS (14)
  1. SIGNIFOR [Suspect]
     Indication: PITUITARY-DEPENDENT CUSHING^S SYNDROME
     Dosage: 0.6 MG, BID
     Route: 065
     Dates: start: 20130603, end: 20130613
  2. SIGNIFOR [Suspect]
     Dosage: 0.3 MG, BID
     Route: 065
     Dates: start: 20130621, end: 20130625
  3. INSULIN [Concomitant]
  4. CLINDAMYCIN [Concomitant]
     Dosage: 300 MG, Q6H
     Dates: start: 20130610, end: 20130613
  5. RAMIPRIL [Concomitant]
  6. ATENOLOL [Concomitant]
  7. TORASEMID [Concomitant]
  8. EUTHYROX [Concomitant]
  9. METFIN [Concomitant]
  10. NOVOMIX 30 [Concomitant]
  11. ASPIRIN CARDIO [Concomitant]
  12. ATORVASTATIN [Concomitant]
  13. ALLOPUR [Concomitant]
  14. PANTOZOL [Concomitant]

REACTIONS (9)
  - Blood cortisol decreased [Recovered/Resolved]
  - General physical health deterioration [Unknown]
  - Feeling cold [Recovered/Resolved]
  - Vomiting [Recovered/Resolved]
  - Malaise [Recovered/Resolved]
  - Fatigue [Recovered/Resolved]
  - Muscular weakness [Recovered/Resolved]
  - Nausea [Recovered/Resolved]
  - Blood glucose increased [Recovering/Resolving]
